FAERS Safety Report 4373945-9 (Version None)
Quarter: 2004Q1

REPORT INFORMATION
  Report Type: 
  Country: None (occurrence: None)
  Receive Date: 20040305
  Receipt Date: 20031206
  Transmission Date: 20041129
  Serious: Yes (Other)
  Sender: FDA-Public Use
  Company Number: 2003UW16157

PATIENT

DRUGS (3)
  1. CRESTOR [Suspect]
  2. FLECAINIDE ACETATE [Suspect]
  3. FLECAINIDE ACETATE [Suspect]

REACTIONS (2)
  - ARRHYTHMIA [None]
  - DRUG INTERACTION [None]
